FAERS Safety Report 7100020-2 (Version None)
Quarter: 2010Q4

REPORT INFORMATION
  Report Type: 
  Country: None (occurrence: None)
  Receive Date: 20101112
  Receipt Date: 20101102
  Transmission Date: 20110411
  Serious: Yes (Hospitalization)
  Sender: FDA-Public Use
  Company Number: PHHY2010FR74791

PATIENT
  Sex: Male

DRUGS (9)
  1. GLEEVEC [Suspect]
     Indication: CHRONIC MYELOID LEUKAEMIA
     Dosage: 600 MG DAILY
     Route: 048
     Dates: start: 20060101, end: 20091201
  2. GLEEVEC [Suspect]
     Dosage: 800 MG DAILY
     Route: 048
     Dates: start: 20091201, end: 20100610
  3. REYATAZ [Concomitant]
  4. VIDEX [Concomitant]
  5. EPIVIR [Concomitant]
  6. NORVIR [Concomitant]
  7. LEDERFOLIN [Concomitant]
  8. BACTRIM [Concomitant]
  9. KARDEGIC [Concomitant]

REACTIONS (4)
  - ARTERITIS [None]
  - ASCITES [None]
  - OEDEMA [None]
  - VASCULAR GRAFT [None]
